FAERS Safety Report 20457834 (Version 1)
Quarter: 2022Q1

REPORT INFORMATION
  Report Type: Report from Study
  Country: US (occurrence: US)
  Receive Date: 20220210
  Receipt Date: 20220210
  Transmission Date: 20220423
  Serious: No
  Sender: FDA-Public Use
  Company Number: US-ACADIA PHARMACEUTICALS INC.-ACA-2022-PIM-000263

PATIENT
  Age: 87 Year
  Sex: Female

DRUGS (7)
  1. NUPLAZID [Suspect]
     Active Substance: PIMAVANSERIN TARTRATE
     Indication: Parkinson^s disease psychosis
     Dosage: 34 MILLIGRAM, QD
     Route: 048
     Dates: start: 20211227, end: 20220109
  2. AMIODARONE [Concomitant]
     Active Substance: AMIODARONE
     Dosage: 200 MILLIGRAM, BID
  3. BISACODYL [Concomitant]
     Active Substance: BISACODYL
     Dosage: 5 MILLIGRAM, PRN
  4. CARBIDOPA\LEVODOPA [Concomitant]
     Active Substance: CARBIDOPA\LEVODOPA
     Dosage: 25-100MG, QID
  5. ROPINIROLE [Concomitant]
     Active Substance: ROPINIROLE
     Dosage: 3 MILLIGRAM, QID
  6. SINEMET [Concomitant]
     Active Substance: CARBIDOPA\LEVODOPA
     Dosage: 25/100MG, QID
  7. DICLOFENAC [Concomitant]
     Active Substance: DICLOFENAC
     Dosage: 4 GRAM, TID

REACTIONS (3)
  - Chest pain [Recovered/Resolved]
  - Back pain [Recovered/Resolved]
  - Dyspnoea [Recovered/Resolved]

NARRATIVE: CASE EVENT DATE: 20211227
